FAERS Safety Report 10661865 (Version 1)
Quarter: 2014Q4

REPORT INFORMATION
  Report Type: Spontaneous
  Country: US (occurrence: None)
  Receive Date: 20141216
  Receipt Date: 20141216
  Transmission Date: 20150529
  Serious: Yes (Life-Threatening, Hospitalization, Disabling)
  Sender: FDA-Public Use
  Company Number: US-IBIGEN-2014.00859

PATIENT
  Age: 57 Year
  Sex: Male

DRUGS (1)
  1. PENICILLIN G [Suspect]
     Active Substance: PENICILLIN G
     Indication: NEUROSYPHILIS
     Dosage: 3 MILLION UNITS

REACTIONS (9)
  - Flat affect [None]
  - White matter lesion [None]
  - Vascular calcification [None]
  - Seizure [None]
  - Romberg test positive [None]
  - Hyperhidrosis [None]
  - Leukocytosis [None]
  - Cerebral infarction [None]
  - Dysarthria [None]

NARRATIVE: CASE EVENT DATE: 2014
